FAERS Safety Report 8779489 (Version 1)
Quarter: 2012Q4

REPORT INFORMATION
  Report Type: 
  Country: US (occurrence: US)
  Receive Date: 20120912
  Receipt Date: 20120912
  Transmission Date: 20130627
  Serious: Yes (Life-Threatening, Hospitalization)
  Sender: FDA-Public Use
  Company Number: US-009507513-1209USA003070

PATIENT

DRUGS (5)
  1. ISENTRESS [Suspect]
     Route: 048
  2. VIRAMUNE [Suspect]
     Dosage: 200 mg, UNK
     Route: 048
  3. VIRAMUNE [Suspect]
     Dosage: 400 mg, UNK
  4. ATRIPLA [Suspect]
     Route: 048
  5. TRUVADA [Suspect]
     Route: 048

REACTIONS (11)
  - Skin exfoliation [Unknown]
  - Conjunctivitis [Unknown]
  - Dermatitis exfoliative [Unknown]
  - Enanthema [Unknown]
  - Dysphagia [Unknown]
  - Pyrexia [Unknown]
  - Constipation [Unknown]
  - Pruritus [Unknown]
  - Face oedema [Unknown]
  - Rash [Unknown]
  - Stevens-Johnson syndrome [Unknown]
